FAERS Safety Report 4915425-5 (Version None)
Quarter: 2006Q1

REPORT INFORMATION
  Report Type: 
  Country: None (occurrence: None)
  Receive Date: 20060217
  Receipt Date: 20050909
  Transmission Date: 20060701
  Serious: Yes (Hospitalization)
  Sender: FDA-Public Use
  Company Number: US-MERCK-0509USA01486

PATIENT
  Age: 63 Year
  Sex: Female

DRUGS (2)
  1. VIOXX [Suspect]
     Route: 048
     Dates: start: 19990101, end: 20000916
  2. VIOXX [Suspect]
     Route: 048
     Dates: end: 20030101

REACTIONS (2)
  - CORONARY ARTERY DISEASE [None]
  - MYOCARDIAL INFARCTION [None]
